FAERS Safety Report 21884680 (Version 1)
Quarter: 2023Q1

REPORT INFORMATION
  Report Type: Report from Study
  Country: JP (occurrence: JP)
  Receive Date: 20230119
  Receipt Date: 20230119
  Transmission Date: 20230418
  Serious: Yes (Death, Other)
  Sender: FDA-Public Use
  Company Number: JP-CELGENE-JPN-20171004802

PATIENT
  Age: 63 Year
  Sex: Male

DRUGS (21)
  1. REVLIMID [Suspect]
     Active Substance: LENALIDOMIDE
     Indication: Adult T-cell lymphoma/leukaemia
     Dosage: 25 MILLIGRAM
     Route: 048
     Dates: start: 20171010, end: 20171012
  2. SULFAMETHOXAZOLE\TRIMETHOPRIM [Concomitant]
     Active Substance: SULFAMETHOXAZOLE\TRIMETHOPRIM
     Indication: Prophylaxis
     Dosage: FREQUENCY TEXT: UNKNOWN?UNKNOWN
     Route: 048
  3. FLUCONAZOLE [Concomitant]
     Active Substance: FLUCONAZOLE
     Indication: Prophylaxis
     Dosage: FREQUENCY TEXT: UNKNOWN?UNKNOWN
     Route: 048
  4. VALSARTAN [Concomitant]
     Active Substance: VALSARTAN
     Indication: Product used for unknown indication
     Dosage: FREQUENCY TEXT: UNKNOWN?UNKNOWN
     Route: 048
  5. AMLODIPINE [Concomitant]
     Active Substance: AMLODIPINE BESYLATE
     Indication: Product used for unknown indication
     Dosage: FREQUENCY TEXT: UNKNOWN?UNKNOWN
     Route: 048
  6. LYRICA [Concomitant]
     Active Substance: PREGABALIN
     Indication: Product used for unknown indication
     Dosage: FREQUENCY TEXT: UNKNOWN?UNKNOWN
     Route: 048
  7. HERBALS [Concomitant]
     Active Substance: HERBALS
     Indication: Product used for unknown indication
     Dosage: FREQUENCY TEXT: UNKNOWN?UNKNOWN
  8. POLAPREZINC [Concomitant]
     Active Substance: POLAPREZINC
     Indication: Product used for unknown indication
     Dosage: FREQUENCY TEXT: UNKNOWN?UNKNOWN
     Route: 048
  9. ZOLPIDEM [Concomitant]
     Active Substance: ZOLPIDEM TARTRATE
     Indication: Product used for unknown indication
     Dosage: FREQUENCY TEXT: UNKNOWN?UNKNOWN
     Route: 048
  10. MIYA-BM [Concomitant]
     Active Substance: CLOSTRIDIUM BUTYRICUM SPORES STRAIN M-55
     Indication: Product used for unknown indication
     Dosage: FREQUENCY TEXT: UNKNOWN?UNKNOWN
     Route: 048
  11. OXYGEN [Concomitant]
     Active Substance: OXYGEN
     Indication: Pneumonia cytomegaloviral
     Dosage: FREQUENCY TEXT: UNKNOWN?UNKNOWN
     Dates: end: 2017
  12. OXYGEN [Concomitant]
     Active Substance: OXYGEN
     Dosage: FREQUENCY TEXT: UNKNOWN?UNKNOWN
     Dates: start: 20171012
  13. ETOPOSIDE [Concomitant]
     Active Substance: ETOPOSIDE
     Indication: Adult T-cell lymphoma/leukaemia
     Route: 048
     Dates: start: 20171013, end: 20171124
  14. SOBUZOXANE [Concomitant]
     Active Substance: SOBUZOXANE
     Indication: Adult T-cell lymphoma/leukaemia
     Route: 048
     Dates: start: 20171018, end: 20171120
  15. OMEPRAZOLE [Concomitant]
     Active Substance: OMEPRAZOLE
     Indication: Prophylaxis
     Route: 048
  16. BETAMETHASONE DIPROPIONATE [Concomitant]
     Active Substance: BETAMETHASONE DIPROPIONATE
     Indication: Adverse event
     Route: 061
  17. FEXOFENADINE [Concomitant]
     Active Substance: FEXOFENADINE HYDROCHLORIDE
     Indication: Adverse event
     Route: 048
  18. PREDNISOLONE [Concomitant]
     Active Substance: PREDNISOLONE
     Indication: Adverse event
     Route: 048
  19. PREDNISOLONE [Concomitant]
     Active Substance: PREDNISOLONE
     Indication: Adult T-cell lymphoma/leukaemia
  20. METHYLPREDNISOLONE SODIUM SUCCINATE [Concomitant]
     Active Substance: METHYLPREDNISOLONE SODIUM SUCCINATE
     Indication: Adverse event
     Route: 041
  21. SOLU-CORTEF [Concomitant]
     Active Substance: HYDROCORTISONE SODIUM SUCCINATE
     Indication: Adverse event
     Route: 042

REACTIONS (5)
  - Wheezing [Recovered/Resolved]
  - Erythema multiforme [Recovering/Resolving]
  - Adult T-cell lymphoma/leukaemia [Fatal]
  - Lacrimation increased [Recovered/Resolved]
  - Rash [Unknown]

NARRATIVE: CASE EVENT DATE: 20171012
